FAERS Safety Report 18548637 (Version 1)
Quarter: 2020Q4

REPORT INFORMATION
  Report Type: Spontaneous
  Country: ES (occurrence: ES)
  Receive Date: 20201126
  Receipt Date: 20201126
  Transmission Date: 20210114
  Serious: No
  Sender: FDA-Public Use
  Company Number: ES-LUPIN PHARMACEUTICALS INC.-2020-06472

PATIENT
  Age: 86 Year
  Sex: Female

DRUGS (2)
  1. IMATINIB MESYLATE. [Suspect]
     Active Substance: IMATINIB MESYLATE
     Indication: GASTROINTESTINAL STROMAL TUMOUR
     Dosage: 400 MILLIGRAM, QD (A STANDARD DOSE)
     Route: 065
  2. IMATINIB MESYLATE. [Suspect]
     Active Substance: IMATINIB MESYLATE
     Dosage: 300 MILLIGRAM, QD (DOSE DECREASED)
     Route: 065

REACTIONS (1)
  - Lichen planopilaris [Recovering/Resolving]
